FAERS Safety Report 19903633 (Version 2)
Quarter: 2022Q1

REPORT INFORMATION
  Report Type: Report from Study
  Country: DE (occurrence: DE)
  Receive Date: 20211001
  Receipt Date: 20220106
  Transmission Date: 20220424
  Serious: Yes (Hospitalization)
  Sender: FDA-Public Use
  Company Number: DE-GILEAD-2021-0550365

PATIENT
  Age: 44 Year
  Sex: Male
  Weight: 115 kg

DRUGS (8)
  1. SOFOSBUVIR\VELPATASVIR [Suspect]
     Active Substance: SOFOSBUVIR\VELPATASVIR
     Indication: Chronic hepatitis C
     Dosage: 500 MG, QD
     Route: 048
     Dates: start: 20210830, end: 20211121
  2. PANTOPRAZOLE [Concomitant]
     Active Substance: PANTOPRAZOLE
  3. TORSEMIDE [Concomitant]
     Active Substance: TORSEMIDE
  4. BISOPROLOL [Concomitant]
     Active Substance: BISOPROLOL
  5. BUPROPION [Concomitant]
     Active Substance: BUPROPION
  6. PAROXETINE [Concomitant]
     Active Substance: PAROXETINE
  7. TRIMIPRAMIN AL [TRIMIPRAMINE MALEATE] [Concomitant]
  8. POLYETHYLENE GLYCOLS [Concomitant]
     Active Substance: POLYETHYLENE GLYCOLS

REACTIONS (4)
  - Pyrexia [Recovered/Resolved]
  - Febrile infection [Unknown]
  - Asthenia [Unknown]
  - Febrile infection [Recovered/Resolved]

NARRATIVE: CASE EVENT DATE: 20210904
